FAERS Safety Report 9250313 (Version 1)
Quarter: 2013Q1

REPORT INFORMATION
  Report Type: Spontaneous
  Country: US (occurrence: None)
  Receive Date: 20130305
  Receipt Date: 20130305
  Transmission Date: 20140127
  Serious: Yes (Hospitalization)
  Sender: FDA-Public Use
  Company Number: 163-21880-12042912

PATIENT
  Age: 84 Year
  Sex: Female

DRUGS (5)
  1. REVLIMID [Suspect]
     Indication: PLASMA CELL MYELOMA
     Dosage: 1 IN 1 D
     Route: 048
     Dates: start: 20120228, end: 20120427
  2. PREDNISONE (PREDNISONE) [Suspect]
  3. VELCADE (BORTEZOMIB) (INJECTION) [Suspect]
  4. AMLODIPINE (AMLODIPINE) [Suspect]
  5. LEVOTHYROXINE (LEVOTHYROXINE) [Suspect]

REACTIONS (4)
  - Sepsis [None]
  - Urinary tract infection [None]
  - Neutropenia [None]
  - Blood count abnormal [None]
